FAERS Safety Report 17066815 (Version 1)
Quarter: 2019Q4

REPORT INFORMATION
  Report Type: Spontaneous
  Country: US (occurrence: US)
  Receive Date: 20191024
  Receipt Date: 20191024
  Transmission Date: 20200122
  Serious: Yes (Death)
  Sender: FDA-Public Use
  Company Number: None

PATIENT
  Age: 58 Year
  Sex: Female

DRUGS (14)
  1. VITAMIN D3 [Concomitant]
     Active Substance: CHOLECALCIFEROL
  2. OMEPRAZOLE. [Concomitant]
     Active Substance: OMEPRAZOLE
  3. PATADAY [Concomitant]
     Active Substance: OLOPATADINE HYDROCHLORIDE
  4. VITAMIN B12 [Concomitant]
     Active Substance: CYANOCOBALAMIN
  5. TYKERB [Suspect]
     Active Substance: LAPATINIB DITOSYLATE
     Indication: NEOPLASM MALIGNANT
     Route: 048
  6. FERROUSE [Concomitant]
  7. LEVOCETIRIZINE [Concomitant]
     Active Substance: LEVOCETIRIZINE
  8. MYRBETRIQ [Concomitant]
     Active Substance: MIRABEGRON
  9. LIDOCAINE. [Concomitant]
     Active Substance: LIDOCAINE
  10. ANASTROZOLE. [Concomitant]
     Active Substance: ANASTROZOLE
  11. FUROSEMIDE. [Concomitant]
     Active Substance: FUROSEMIDE
  12. CALCIUM [Concomitant]
     Active Substance: CALCIUM
  13. POTASSIUM [Concomitant]
     Active Substance: POTASSIUM
  14. LYRICA [Concomitant]
     Active Substance: PREGABALIN

REACTIONS (1)
  - Death [None]
